FAERS Safety Report 4515964-5 (Version None)
Quarter: 2004Q4

REPORT INFORMATION
  Report Type: 
  Country: None (occurrence: None)
  Receive Date: 20041129
  Receipt Date: 20041119
  Transmission Date: 20050328
  Serious: Yes (Other)
  Sender: FDA-Public Use
  Company Number: 2004-11-1396

PATIENT
  Age: 31 Year
  Sex: Male

DRUGS (1)
  1. INTRON A [Suspect]
     Dosage: 6 MIU QOD

REACTIONS (1)
  - HAEMOLYTIC URAEMIC SYNDROME [None]
